FAERS Safety Report 11115369 (Version 1)
Quarter: 2015Q2

REPORT INFORMATION
  Report Type: Spontaneous
  Country: US (occurrence: None)
  Receive Date: 20150511
  Receipt Date: 20150511
  Transmission Date: 20150821
  Serious: Yes (Other)
  Sender: FDA-Public Use
  Company Number: 201412IM007875

PATIENT
  Age: 18 Year
  Sex: Female

DRUGS (1)
  1. ESBRIET [Suspect]
     Active Substance: PIRFENIDONE
     Indication: PULMONARY FIBROSIS
     Route: 048
     Dates: start: 201411

REACTIONS (3)
  - Nausea [None]
  - Vomiting [None]
  - Angioedema [None]

NARRATIVE: CASE EVENT DATE: 201411
